FAERS Safety Report 21649813 (Version 1)
Quarter: 2022Q4

REPORT INFORMATION
  Report Type: Report from Study
  Country: IT (occurrence: IT)
  Receive Date: 20221128
  Receipt Date: 20221128
  Transmission Date: 20230112
  Serious: Yes (Other)
  Sender: FDA-Public Use
  Company Number: None

PATIENT
  Age: 3 Year
  Sex: Female
  Weight: 18 kg

DRUGS (4)
  1. METHOTREXATE (METHOTREXATE SODIUM) [Suspect]
     Active Substance: METHOTREXATE SODIUM
     Indication: Acute lymphocytic leukaemia
     Dosage: 12 MG ON 8/1/22 AND 9/5/22 , METOTRESSATO TEVA  , DURATION : 35 DAYS
     Dates: start: 20220801, end: 20220905
  2. CYTARABINE [Suspect]
     Active Substance: CYTARABINE
     Indication: Acute lymphocytic leukaemia
     Dosage: 50.40 MG/DAY FROM DAY 25/07 TO DAY 28/07/22 , 50.40 MG/DAY FROM 01/08 TO 04/08/22 , 50.40 MG/DAY FRO
     Dates: start: 20220725, end: 20220908
  3. CYCLOPHOSPHAMIDE [Suspect]
     Active Substance: CYCLOPHOSPHAMIDE
     Indication: Acute lymphocytic leukaemia
     Dosage: 670 MG ON 8/26/22 AND 9/12/22 , DURATION : 17 DAYS
     Dates: start: 20220826, end: 20220912
  4. PURINETHOL [Suspect]
     Active Substance: MERCAPTOPURINE
     Indication: Acute lymphocytic leukaemia
     Dosage: 40 MILLIGRAM DAILY; 40 MG/DAY , DURATION : 51 DAYS
     Dates: start: 20220723, end: 20220912

REACTIONS (4)
  - Pancytopenia [Recovering/Resolving]
  - Febrile neutropenia [Recovered/Resolved]
  - Drug-induced liver injury [Recovered/Resolved]
  - Anaemia [Not Recovered/Not Resolved]

NARRATIVE: CASE EVENT DATE: 20220803
